FAERS Safety Report 9142890 (Version 2)
Quarter: 2013Q2

REPORT INFORMATION
  Report Type: Spontaneous
  Country: US (occurrence: US)
  Receive Date: 20130306
  Receipt Date: 20130415
  Transmission Date: 20140414
  Serious: No
  Sender: FDA-Public Use
  Company Number: US-PFIZER INC-2013074854

PATIENT
  Age: 77 Year
  Sex: Male
  Weight: 77.1 kg

DRUGS (4)
  1. SUMATRIPTAN SUCCINATE [Suspect]
     Indication: MIGRAINE
     Dosage: 50 MG, AS NEEDED
     Route: 065
     Dates: start: 20130128, end: 20130130
  2. SUMATRIPTAN SUCCINATE [Suspect]
     Dosage: AS REQUIRED, UNK
     Route: 065
     Dates: start: 20130130, end: 20130130
  3. NYSTATIN [Concomitant]
     Indication: PRODUCT USED FOR UNKNOWN INDICATION
     Dosage: UNK
     Route: 065
  4. RANITIDINE [Concomitant]
     Indication: PRODUCT USED FOR UNKNOWN INDICATION
     Dosage: UNK
     Route: 065

REACTIONS (3)
  - Burning sensation mucosal [Recovered/Resolved]
  - Product quality issue [Recovered/Resolved]
  - Product taste abnormal [Recovered/Resolved]
